FAERS Safety Report 17866358 (Version 3)
Quarter: 2020Q3

REPORT INFORMATION
  Report Type: Report from Study
  Country: GB (occurrence: GB)
  Receive Date: 20200605
  Receipt Date: 20200717
  Transmission Date: 20201103
  Serious: Yes (Other)
  Sender: FDA-Public Use
  Company Number: GB-SAMSUNG BIOEPIS-SB-2020-09886

PATIENT
  Sex: Female

DRUGS (1)
  1. IMRALDI [Suspect]
     Active Substance: ADALIMUMAB
     Indication: PSORIATIC ARTHROPATHY
     Route: 058
     Dates: start: 202003

REACTIONS (6)
  - Onychoclasis [Unknown]
  - Sinusitis [Unknown]
  - Limb discomfort [Unknown]
  - Dactylitis [Recovered/Resolved]
  - Contusion [Unknown]
  - Coronavirus infection [Unknown]
